FAERS Safety Report 25758193 (Version 1)
Quarter: 2025Q3

REPORT INFORMATION
  Report Type: Spontaneous
  Country: US (occurrence: US)
  Receive Date: 20250904
  Receipt Date: 20250904
  Transmission Date: 20251021
  Serious: Yes (Life-Threatening, Hospitalization)
  Sender: AMGEN
  Company Number: US-AMGEN-USASP2025168157

PATIENT
  Age: 14 Year
  Sex: Male
  Weight: 54.2 kg

DRUGS (11)
  1. PREDNISONE [Suspect]
     Active Substance: PREDNISONE
     Indication: Asthma
     Route: 048
  2. SEVOFLURANE [Concomitant]
     Active Substance: SEVOFLURANE
     Indication: Product used for unknown indication
     Route: 065
  3. SEVOFLURANE [Concomitant]
     Active Substance: SEVOFLURANE
     Route: 065
  4. ALBUTEROL [Concomitant]
     Active Substance: ALBUTEROL
  5. ALBUTEROL [Concomitant]
     Active Substance: ALBUTEROL
     Dosage: 2.5 MILLIGRAM/3 ML EVERY 20 MIN
  6. IPRATROPIUM [Concomitant]
     Active Substance: IPRATROPIUM
     Indication: Asthma
  7. IPRATROPIUM [Concomitant]
     Active Substance: IPRATROPIUM
     Dosage: 0.5 MILLIGRAM/3 ML EVERY 20 MIN
  8. MAGNESIUM SULFATE [Concomitant]
     Active Substance: MAGNESIUM SULFATE
     Route: 040
  9. MAGNESIUM SULFATE [Concomitant]
     Active Substance: MAGNESIUM SULFATE
     Route: 040
  10. MAGNESIUM SULFATE [Concomitant]
     Active Substance: MAGNESIUM SULFATE
     Dosage: 20 MILLIGRAM/KILOGRAM, QH
     Route: 040
  11. MAGNESIUM SULFATE [Concomitant]
     Active Substance: MAGNESIUM SULFATE
     Dosage: 25 MILLIGRAM/KILOGRAM, QH
     Route: 040

REACTIONS (4)
  - Asthmatic crisis [Unknown]
  - Anxiety [Unknown]
  - Hyperkalaemia [Recovered/Resolved]
  - Drug ineffective [Unknown]
